FAERS Safety Report 9669935 (Version 1)
Quarter: 2013Q4

REPORT INFORMATION
  Report Type: Spontaneous
  Country: CA (occurrence: CA)
  Receive Date: 20131105
  Receipt Date: 20131105
  Transmission Date: 20140711
  Serious: Yes (Death, Hospitalization)
  Sender: FDA-Public Use
  Company Number: CA-GLAXOSMITHKLINE-A1016608A

PATIENT
  Age: 60 Year
  Sex: Female

DRUGS (5)
  1. VOTRIENT [Suspect]
     Indication: SARCOMA
     Dosage: 800MG PER DAY
     Route: 048
     Dates: start: 20130319, end: 2013
  2. RADIATION THERAPY [Suspect]
  3. CALCIUM [Concomitant]
  4. VITAMIN D [Concomitant]
  5. ATIVAN [Concomitant]

REACTIONS (13)
  - Insomnia [Recovered/Resolved]
  - Chest discomfort [Not Recovered/Not Resolved]
  - Nausea [Recovered/Resolved]
  - Paraesthesia [Unknown]
  - Diarrhoea [Unknown]
  - Depressed mood [Unknown]
  - Dizziness [Unknown]
  - Fatigue [Unknown]
  - Vomiting [Unknown]
  - Back pain [Unknown]
  - Faeces discoloured [Unknown]
  - Headache [Not Recovered/Not Resolved]
  - Death [Fatal]
